FAERS Safety Report 9332323 (Version 1)
Quarter: 2013Q2

REPORT INFORMATION
  Report Type: Spontaneous
  Country: US (occurrence: US)
  Receive Date: 20130606
  Receipt Date: 20130606
  Transmission Date: 20140414
  Serious: No
  Sender: FDA-Public Use
  Company Number: US-B.I. PHARMACEUTICALS,INC./RIDGEFIELD-2013-BI-15472BP

PATIENT
  Sex: Male
  Weight: 67.59 kg

DRUGS (6)
  1. MICARDIS [Suspect]
     Indication: HYPERTENSION
  2. NORVASC [Suspect]
     Indication: HYPERTENSION
  3. BENICAR [Suspect]
     Indication: HYPERTENSION
     Dosage: HALF OF 20 MG TABLET DAILY
  4. COZAAR [Suspect]
     Indication: HYPERTENSION
  5. FUROSEMIDE [Concomitant]
     Indication: HYPERTENSION
  6. ZOCOR [Concomitant]
     Indication: BLOOD CHOLESTEROL INCREASED
     Dosage: 10 MG

REACTIONS (3)
  - Respiratory disorder [Unknown]
  - Stent placement [Unknown]
  - Underdose [Unknown]
